FAERS Safety Report 11692306 (Version 1)
Quarter: 2015Q4

REPORT INFORMATION
  Report Type: Spontaneous
  Country: US (occurrence: US)
  Receive Date: 20151103
  Receipt Date: 20151103
  Transmission Date: 20160304
  Serious: Yes (Hospitalization)
  Sender: FDA-Public Use
  Company Number: US-ACCORD-034927

PATIENT
  Age: 8 Year
  Sex: Male

DRUGS (3)
  1. QUETIAPINE [Suspect]
     Active Substance: QUETIAPINE
     Indication: AUTISM SPECTRUM DISORDER
     Dosage: RECEIVED 200 MG EVERY MORNING, 200 MG AT NOON, AND 300 MG AT BEDTIME.
  2. OXCARBAZEPINE. [Interacting]
     Active Substance: OXCARBAZEPINE
     Indication: AUTISM SPECTRUM DISORDER
  3. CLONIDINE. [Concomitant]
     Active Substance: CLONIDINE
     Indication: AUTISM SPECTRUM DISORDER

REACTIONS (4)
  - Drug interaction [Unknown]
  - Drug level decreased [Recovered/Resolved]
  - Aggression [Recovered/Resolved]
  - Off label use [Unknown]
